FAERS Safety Report 18123898 (Version 1)
Quarter: 2020Q3

REPORT INFORMATION
  Report Type: Spontaneous
  Country: US (occurrence: US)
  Receive Date: 20200807
  Receipt Date: 20200807
  Transmission Date: 20201103
  Serious: No
  Sender: FDA-Public Use
  Company Number: US-SA-2020SA204339

PATIENT

DRUGS (3)
  1. ZICAM [OXYMETAZOLINE HYDROCHLORIDE] [Concomitant]
     Dosage: UNK
     Route: 045
  2. NASACORT ALLERGY 24HR [Suspect]
     Active Substance: TRIAMCINOLONE ACETONIDE
     Dosage: UNK
     Route: 065
  3. LATANOPROST. [Concomitant]
     Active Substance: LATANOPROST
     Dosage: 1 DROP, HS (EACH EYE)
     Route: 047

REACTIONS (2)
  - Product use complaint [Unknown]
  - Drug ineffective [Unknown]
